FAERS Safety Report 24034710 (Version 4)
Quarter: 2024Q3

REPORT INFORMATION
  Report Type: Report from Study
  Country: CA (occurrence: CA)
  Receive Date: 20240701
  Receipt Date: 20240710
  Transmission Date: 20241017
  Serious: No
  Sender: ROCHE
  Company Number: CA-ROCHE-3521070

PATIENT
  Age: 20 Year
  Sex: Male

DRUGS (5)
  1. EVRYSDI [Suspect]
     Active Substance: RISDIPLAM
     Indication: Spinal muscular atrophy
     Route: 048
     Dates: start: 20210714
  2. CALCIUM [Concomitant]
     Active Substance: CALCIUM
  3. FOLIC ACID [Concomitant]
     Active Substance: FOLIC ACID
  4. ERGOCALCIFEROL [Concomitant]
     Active Substance: ERGOCALCIFEROL
  5. ISOTRETINOIN [Concomitant]
     Active Substance: ISOTRETINOIN

REACTIONS (10)
  - Median nerve injury [Unknown]
  - Arthropathy [Unknown]
  - Pain in extremity [Unknown]
  - Joint contracture [Unknown]
  - Grip strength decreased [Unknown]
  - Nerve compression [Unknown]
  - Hypoaesthesia [Not Recovered/Not Resolved]
  - Limb injury [Unknown]
  - Nerve injury [Unknown]
  - Product container seal issue [Unknown]

NARRATIVE: CASE EVENT DATE: 20231201
